FAERS Safety Report 6252853-2 (Version None)
Quarter: 2009Q2

REPORT INFORMATION
  Report Type: 
  Country: None (occurrence: None)
  Receive Date: 20090629
  Receipt Date: 20090629
  Transmission Date: 20091009
  Serious: Yes (Hospitalization)
  Sender: FDA-Public Use
  Company Number: None

PATIENT
  Age: 35 Year
  Sex: Male
  Weight: 99.7 kg

DRUGS (2)
  1. CETUXIMAB 100 MG BRISTOL-MYERS SQUIBB COMPANY [Suspect]
     Indication: ORAL DISORDER
     Dosage: 400 MG/M2 -950 MG- XL IV
     Route: 042
     Dates: start: 20090611, end: 20090611
  2. DIPHENHYDRAMINE HCL [Concomitant]

REACTIONS (6)
  - DIZZINESS [None]
  - FLUSHING [None]
  - INFLUENZA LIKE ILLNESS [None]
  - LOCAL SWELLING [None]
  - NECK PAIN [None]
  - PYREXIA [None]
